FAERS Safety Report 10363385 (Version 1)
Quarter: 2014Q3

REPORT INFORMATION
  Report Type: Spontaneous
  Country: US (occurrence: US)
  Receive Date: 20140805
  Receipt Date: 20140805
  Transmission Date: 20150326
  Serious: Yes (Other)
  Sender: FDA-Public Use
  Company Number: US-ABBVIE-14P-163-1266495-00

PATIENT
  Age: 18 Year
  Sex: Female
  Weight: 64.47 kg

DRUGS (1)
  1. LUPRON DEPOT [Suspect]
     Active Substance: LEUPROLIDE ACETATE
     Indication: ENDOMETRIOSIS
     Dates: start: 201310, end: 201401

REACTIONS (4)
  - Weight increased [Recovered/Resolved]
  - Dysmenorrhoea [Recovering/Resolving]
  - Fallopian tube obstruction [Recovering/Resolving]
  - Uterine leiomyoma [Recovering/Resolving]

NARRATIVE: CASE EVENT DATE: 201301
